FAERS Safety Report 22313936 (Version 5)
Quarter: 2024Q1

REPORT INFORMATION
  Report Type: Report from Study
  Country: IT (occurrence: IT)
  Receive Date: 20230512
  Receipt Date: 20240329
  Transmission Date: 20240410
  Serious: Yes (Hospitalization)
  Sender: FDA-Public Use
  Company Number: None

PATIENT

DRUGS (8)
  1. PEGASPARGASE [Suspect]
     Active Substance: PEGASPARGASE
     Indication: Acute lymphocytic leukaemia recurrent
     Dosage: SINGLE ADMINISTRATION 1500 IU
     Route: 042
     Dates: start: 20230418, end: 20230418
  2. CYTARABINE [Suspect]
     Active Substance: CYTARABINE
     Indication: Acute lymphocytic leukaemia recurrent
     Dosage: 30 MG IT
     Route: 037
     Dates: start: 20230412
  3. CYTARABINE [Suspect]
     Active Substance: CYTARABINE
     Dosage: 3000 MG, 2 DOSES EVERY 12H
     Route: 042
     Dates: start: 20230417, end: 20230417
  4. METHOTREXATE (METHOTREXATE SODIUM) [Suspect]
     Active Substance: METHOTREXATE SODIUM
     Indication: Product used for unknown indication
     Dosage: 12 MG IT
     Route: 037
     Dates: start: 20230412
  5. METHOTREXATE (METHOTREXATE SODIUM) [Suspect]
     Active Substance: METHOTREXATE SODIUM
     Dosage: 1500 MG, 150 MG ADMINISTERED IN 30 MIN, 1350 MG ADMINISTERED IN 2130 MIN
     Route: 042
     Dates: start: 20230412, end: 20230414
  6. VINCRISTINE [Suspect]
     Active Substance: VINCRISTINE
     Indication: Product used for unknown indication
     Dosage: 2 MG, 2 ADMINISTRATIONS ON 12/04 AND 18/04/2023
     Route: 042
     Dates: start: 20230412, end: 20230418
  7. CYCLOPHOSPHAMIDE [Suspect]
     Active Substance: CYCLOPHOSPHAMIDE
     Indication: Product used for unknown indication
     Dosage: 300 MG, Q12H; (5 DOSES, 1 EVERY 12 HOURS OF 300 MG)
     Route: 042
     Dates: start: 20230414, end: 20230416
  8. METHYLPREDNISOLONE [Suspect]
     Active Substance: METHYLPREDNISOLONE
     Indication: Product used for unknown indication
     Dosage: 10 MG IT
     Route: 037
     Dates: start: 20230412

REACTIONS (1)
  - Febrile bone marrow aplasia [Recovering/Resolving]

NARRATIVE: CASE EVENT DATE: 20230421
